FAERS Safety Report 12132799 (Version 1)
Quarter: 2016Q1

REPORT INFORMATION
  Report Type: Spontaneous
  Country: US (occurrence: US)
  Receive Date: 20160301
  Receipt Date: 20160301
  Transmission Date: 20160526
  Serious: No
  Sender: FDA-Public Use
  Company Number: US-JNJFOC-20160106854

PATIENT
  Age: 69 Year
  Sex: Female
  Weight: 83.46 kg

DRUGS (3)
  1. FISH OIL [Concomitant]
     Active Substance: FISH OIL
     Indication: DRUG THERAPY
     Route: 065
     Dates: start: 20160106
  2. IMODIUM A-D [Suspect]
     Active Substance: LOPERAMIDE HYDROCHLORIDE
     Route: 048
  3. IMODIUM A-D [Suspect]
     Active Substance: LOPERAMIDE HYDROCHLORIDE
     Indication: IRRITABLE BOWEL SYNDROME
     Dosage: 1/2 TEASPOON
     Route: 048
     Dates: start: 20160104

REACTIONS (6)
  - Product use issue [Unknown]
  - Liquid product physical issue [Unknown]
  - Product taste abnormal [Unknown]
  - Drug ineffective for unapproved indication [Recovered/Resolved]
  - Off label use [Unknown]
  - Tremor [Recovered/Resolved]

NARRATIVE: CASE EVENT DATE: 20160108
